FAERS Safety Report 20636514 (Version 2)
Quarter: 2022Q2

REPORT INFORMATION
  Report Type: Spontaneous
  Country: US (occurrence: US)
  Receive Date: 20220325
  Receipt Date: 20220429
  Transmission Date: 20220721
  Serious: Yes (Hospitalization, Other)
  Sender: FDA-Public Use
  Company Number: US-GLAXOSMITHKLINE-US2022049327

PATIENT
  Age: 66 Year
  Sex: Female

DRUGS (1)
  1. TRELEGY ELLIPTA [Suspect]
     Active Substance: FLUTICASONE FUROATE\UMECLIDINIUM BROMIDE\VILANTEROL TRIFENATATE
     Indication: Chronic obstructive pulmonary disease
     Dosage: 1 PUFF(S), QD, 100/62.5/25MCG INH 30INHALE
     Route: 055

REACTIONS (10)
  - Lower limb fracture [Recovered/Resolved]
  - Arthritis infective [Recovered/Resolved]
  - Upper limb fracture [Recovered/Resolved]
  - Wrist fracture [Unknown]
  - Fall [Recovered/Resolved]
  - Knee operation [Recovered/Resolved]
  - Foot fracture [Unknown]
  - Elbow operation [Recovered/Resolved]
  - Surgery [Recovered/Resolved]
  - Mobility decreased [Recovered/Resolved]

NARRATIVE: CASE EVENT DATE: 20210127
